FAERS Safety Report 18398131 (Version 1)
Quarter: 2020Q4

REPORT INFORMATION
  Report Type: Spontaneous
  Country: IN (occurrence: IN)
  Receive Date: 20201019
  Receipt Date: 20201019
  Transmission Date: 20210114
  Serious: Yes (Hospitalization, Other)
  Sender: FDA-Public Use
  Company Number: IN-EMCURE PHARMACEUTICALS LTD-2020-EPL-001585

PATIENT
  Age: 65 Year
  Sex: Male

DRUGS (2)
  1. COLISTIMETHATE SODIUM. [Suspect]
     Active Substance: COLISTIMETHATE SODIUM
     Indication: PNEUMONIA
     Dosage: 2 MILLION INTERNATIONAL UNIT, 1 DOSE PER 8HRS
  2. CEFOPERAZONE/SULBACTAM [Concomitant]
     Active Substance: CEFOPERAZONE\SULBACTAM
     Indication: PNEUMONIA
     Dosage: 2 GRAM, 1 DOSE PER 12HR

REACTIONS (3)
  - Weaning failure [Recovered/Resolved]
  - Supraventricular tachycardia [Recovered/Resolved]
  - Bartter^s syndrome [Recovered/Resolved]
